FAERS Safety Report 11076361 (Version 1)
Quarter: 2015Q2

REPORT INFORMATION
  Report Type: Report from Study
  Country: DK (occurrence: DE)
  Receive Date: 20150429
  Receipt Date: 20150429
  Transmission Date: 20150821
  Serious: Yes (Hospitalization)
  Sender: FDA-Public Use
  Company Number: DE-FRI-1000076165

PATIENT
  Age: 20 Year
  Sex: Male

DRUGS (12)
  1. ABILIFY [Interacting]
     Active Substance: ARIPIPRAZOLE
     Indication: PRODUCT USED FOR UNKNOWN INDICATION
     Dosage: 15 MG
     Route: 048
     Dates: start: 200908
  2. LEPONEX [Interacting]
     Active Substance: CLOZAPINE
     Dosage: 50 MG
     Route: 048
     Dates: start: 20100204, end: 20100204
  3. ELONTRIL [Interacting]
     Active Substance: BUPROPION HYDROCHLORIDE
     Dosage: 300 MG
     Route: 048
     Dates: start: 20100120, end: 20100202
  4. CITALOPRAM [Suspect]
     Active Substance: CITALOPRAM HYDROBROMIDE
     Indication: PRODUCT USED FOR UNKNOWN INDICATION
     Dosage: ONCE PER DAY
     Route: 048
  5. ELONTRIL [Interacting]
     Active Substance: BUPROPION HYDROCHLORIDE
     Indication: PRODUCT USED FOR UNKNOWN INDICATION
     Dosage: 150 MG
     Route: 048
     Dates: start: 20100112, end: 20100119
  6. LEPONEX [Interacting]
     Active Substance: CLOZAPINE
     Dosage: 100 MG
     Route: 048
     Dates: start: 20100119, end: 20100128
  7. LEPONEX [Interacting]
     Active Substance: CLOZAPINE
     Indication: PRODUCT USED FOR UNKNOWN INDICATION
     Dosage: 50 MG
     Route: 048
     Dates: start: 200908, end: 20100113
  8. LEPONEX [Interacting]
     Active Substance: CLOZAPINE
     Dosage: 150 MG
     Route: 048
     Dates: start: 20100129, end: 20100130
  9. LEPONEX [Interacting]
     Active Substance: CLOZAPINE
     Dosage: 100 MG
     Route: 048
     Dates: start: 20100203, end: 20100203
  10. LEPONEX [Interacting]
     Active Substance: CLOZAPINE
     Dosage: 200 MG
     Route: 048
     Dates: start: 20100131, end: 20100202
  11. LEPONEX [Interacting]
     Active Substance: CLOZAPINE
     Dosage: 75 MG
     Route: 048
     Dates: start: 20100114, end: 20100118
  12. LEPONEX [Interacting]
     Active Substance: CLOZAPINE
     Dosage: 25 MG
     Route: 048
     Dates: start: 20100225

REACTIONS (3)
  - Generalised tonic-clonic seizure [Recovered/Resolved]
  - Drug interaction [Recovered/Resolved]
  - Myoclonus [Recovered/Resolved]

NARRATIVE: CASE EVENT DATE: 20100201
